FAERS Safety Report 25357915 (Version 1)
Quarter: 2025Q2

REPORT INFORMATION
  Report Type: Spontaneous
  Country: RO (occurrence: RO)
  Receive Date: 20250526
  Receipt Date: 20250526
  Transmission Date: 20250716
  Serious: Yes (Life-Threatening, Hospitalization)
  Sender: TEVA
  Company Number: RO-TEVA-VS-3334015

PATIENT
  Age: 50 Year
  Sex: Female

DRUGS (2)
  1. PAROXETINE [Suspect]
     Active Substance: PAROXETINE
     Indication: Depression
     Route: 065
  2. METHIMAZOLE [Concomitant]
     Active Substance: METHIMAZOLE
     Indication: Goitre
     Route: 065

REACTIONS (10)
  - Polydipsia psychogenic [Recovering/Resolving]
  - Tongue biting [Recovering/Resolving]
  - Hyponatraemia [Recovered/Resolved]
  - Hypotonia [Recovering/Resolving]
  - Seizure [Recovering/Resolving]
  - Mouth haemorrhage [Recovering/Resolving]
  - Metabolic acidosis [Recovering/Resolving]
  - Respiratory arrest [Recovered/Resolved]
  - Generalised tonic-clonic seizure [Recovering/Resolving]
  - Coma [Recovering/Resolving]
